FAERS Safety Report 14408295 (Version 2)
Quarter: 2018Q1

REPORT INFORMATION
  Report Type: Report from Study
  Country: None (occurrence: CA)
  Receive Date: 20180118
  Receipt Date: 20180326
  Transmission Date: 20180509
  Serious: Yes (Other)
  Sender: FDA-Public Use
  Company Number: CA-ABBVIE-18K-028-2227644-00

PATIENT
  Sex: Male

DRUGS (2)
  1. HUMIRA [Suspect]
     Active Substance: ADALIMUMAB
     Route: 058
     Dates: start: 201801, end: 20180110
  2. HUMIRA [Suspect]
     Active Substance: ADALIMUMAB
     Indication: PSORIATIC ARTHROPATHY
     Route: 058
     Dates: start: 20161130, end: 201712

REACTIONS (11)
  - Chest discomfort [Unknown]
  - Nasopharyngitis [Unknown]
  - Anaphylactic shock [Not Recovered/Not Resolved]
  - Malaise [Unknown]
  - Swelling face [Unknown]
  - Lip swelling [Unknown]
  - Nausea [Unknown]
  - Hypersensitivity [Not Recovered/Not Resolved]
  - Mobility decreased [Unknown]
  - Cardiac valve disease [Unknown]
  - Pruritus [Unknown]
